FAERS Safety Report 7889095-0 (Version None)
Quarter: 2011Q4

REPORT INFORMATION
  Report Type: 
  Country: None (occurrence: None)
  Receive Date: 20111101
  Receipt Date: 20111018
  Transmission Date: 20120403
  Serious: Yes (Life-Threatening, Hospitalization)
  Sender: FDA-Public Use
  Company Number: DSM-2011-00995

PATIENT
  Age: 61 Year
  Sex: Male
  Weight: 80 kg

DRUGS (3)
  1. DICLOFENAC (DICLOFENAC) (SUPPORITORY) (DICLOFENAC) [Suspect]
     Indication: PRODUCT USED FOR UNKNOWN INDICATION
     Dosage: AS NEEDED, RECTAL
     Route: 054
  2. AMLODIPINE BESYLATE AND OLMESARTAN MEDOXOMIL [Suspect]
     Indication: PRODUCT USED FOR UNKNOWN INDICATION
     Dosage: 40/10 MG, ORAL; 20/5 MG, ORAL
     Route: 048
     Dates: start: 20110101
  3. AMLODIPINE BESYLATE AND OLMESARTAN MEDOXOMIL [Suspect]
     Indication: PRODUCT USED FOR UNKNOWN INDICATION
     Dosage: 40/10 MG, ORAL; 20/5 MG, ORAL
     Route: 048
     Dates: start: 20110101, end: 20110101

REACTIONS (3)
  - BLOOD PRESSURE DECREASED [None]
  - HYPERTENSIVE CRISIS [None]
  - FEELING ABNORMAL [None]
